FAERS Safety Report 16439685 (Version 1)
Quarter: 2019Q3

REPORT INFORMATION
  Report Type: Spontaneous
  Country: US (occurrence: US)
  Receive Date: 20190617
  Receipt Date: 20190617
  Transmission Date: 20191004
  Serious: Yes (Hospitalization)
  Sender: FDA-Public Use
  Company Number: None

PATIENT
  Sex: Female

DRUGS (15)
  1. HUMIRA [Suspect]
     Active Substance: ADALIMUMAB
     Indication: ANKYLOSING SPONDYLITIS
     Dosage: ?          OTHER FREQUENCY:EVERY OTHER WEEK;?
     Route: 058
     Dates: start: 20180821
  2. SERTRALINE [Concomitant]
     Active Substance: SERTRALINE HYDROCHLORIDE
  3. METOPROLOL. [Concomitant]
     Active Substance: METOPROLOL
  4. QUETIAPINE. [Concomitant]
     Active Substance: QUETIAPINE
  5. SULFASALAZINE. [Concomitant]
     Active Substance: SULFASALAZINE
  6. VRAYLAR [Concomitant]
     Active Substance: CARIPRAZINE
  7. SUCRALFATE. [Concomitant]
     Active Substance: SUCRALFATE
  8. TOPIRAMATE. [Concomitant]
     Active Substance: TOPIRAMATE
  9. FOLIC ACID. [Concomitant]
     Active Substance: FOLIC ACID
  10. LOSARTAN. [Concomitant]
     Active Substance: LOSARTAN
  11. SPIRONOLACTONE. [Concomitant]
     Active Substance: SPIRONOLACTONE
  12. MONTELUKAST [Concomitant]
     Active Substance: MONTELUKAST SODIUM
  13. OMEPRAZOLE. [Concomitant]
     Active Substance: OMEPRAZOLE
  14. PILOCARPINE. [Concomitant]
     Active Substance: PILOCARPINE
  15. PROGESTERONE. [Concomitant]
     Active Substance: PROGESTERONE

REACTIONS (3)
  - Condition aggravated [None]
  - Upper limb fracture [None]
  - Therapy cessation [None]
